FAERS Safety Report 21645093 (Version 4)
Quarter: 2023Q1

REPORT INFORMATION
  Report Type: Report from Study
  Country: CZ (occurrence: None)
  Receive Date: 20221125
  Receipt Date: 20230213
  Transmission Date: 20230417
  Serious: Yes (Life-Threatening, Hospitalization)
  Sender: FDA-Public Use
  Company Number: CZ-ROCHE-3174009

PATIENT
  Age: 47 Year
  Sex: Female
  Weight: 82 kg

DRUGS (16)
  1. PLACEBO [Suspect]
     Active Substance: UNSPECIFIED INGREDIENT
     Indication: Relapsing-remitting multiple sclerosis
     Dosage: WEEK 2: 09/MAY/2012 (LOT NUMBER: 606118)
     Route: 042
     Dates: start: 20120424, end: 20120424
  2. PLACEBO [Suspect]
     Active Substance: UNSPECIFIED INGREDIENT
     Route: 042
     Dates: start: 20121016, end: 20121016
  3. PLACEBO [Suspect]
     Active Substance: UNSPECIFIED INGREDIENT
     Dosage: WEEK 72: 10/SEP/2013 (LOT NUMBER: 610317)
     Route: 042
     Dates: start: 20130327, end: 20130910
  4. INTERFERON BETA-1A [Suspect]
     Active Substance: INTERFERON BETA-1A
     Indication: Relapsing-remitting multiple sclerosis
     Route: 058
     Dates: start: 20120424, end: 20120424
  5. INTERFERON BETA-1A [Suspect]
     Active Substance: INTERFERON BETA-1A
     Route: 058
     Dates: start: 20140226, end: 20140319
  6. OCRELIZUMAB [Suspect]
     Active Substance: OCRELIZUMAB
     Indication: Relapsing-remitting multiple sclerosis
     Route: 042
     Dates: start: 20140320, end: 20140320
  7. OCRELIZUMAB [Suspect]
     Active Substance: OCRELIZUMAB
     Route: 042
     Dates: start: 20140403, end: 20140403
  8. OCRELIZUMAB [Suspect]
     Active Substance: OCRELIZUMAB
     Dosage: WEEK 48: 19/FEB/2015 (LOT NUMBER: 1145322),  WEEK 72: 06/AUG/2015 (LOT NUMBER: 1148067),  WEEK 96: 2
     Route: 042
     Dates: start: 20140904
  9. PARALEN (CZECH REPUBLIC) [Concomitant]
     Dosage: NEXT DOSE ON: 09/MAY/2012, 16/OCT/2012, 27/MAR/2013, 10/SEP/2013, 20/MAR/2014, 03/APR/2014, 04/SEP/2
     Dates: start: 20120424
  10. CETIRIZINE HYDROCHLORIDE [Concomitant]
     Active Substance: CETIRIZINE HYDROCHLORIDE
     Dosage: NEXT DOSE ON: 09/MAY/2012, 16/OCT/2012, 27/MAR/2013, 10/SEP/2013, 20/MAR/2014, 03/APR/2014, 04/SEP/2
     Dates: start: 20120424
  11. METHYLPREDNISOLONE [Concomitant]
     Active Substance: METHYLPREDNISOLONE
     Dosage: NEXT DOSE ON: 09/MAY/2012, 16/OCT/2012, 27/MAR/2013, 10/SEP/2013, 20/MAR/2014, 03/APR/2014, 04/SEP/2
     Dates: start: 20120424, end: 20120424
  12. ACYCLOVIR [Concomitant]
     Active Substance: ACYCLOVIR
     Dates: start: 20220901
  13. CEFTRIAXONE [Concomitant]
     Active Substance: CEFTRIAXONE
     Dates: start: 20220901
  14. ESSENTIALE FORTE [Concomitant]
     Dates: start: 20220901
  15. HYLAK FORTE [Concomitant]
     Dates: start: 20220901, end: 20220930
  16. AMPICILLIN [Concomitant]
     Active Substance: AMPICILLIN
     Dates: start: 20220901

REACTIONS (1)
  - Neuroborreliosis [Recovered/Resolved]

NARRATIVE: CASE EVENT DATE: 20220830
